FAERS Safety Report 5257915-4 (Version None)
Quarter: 2007Q1

REPORT INFORMATION
  Report Type: 
  Country: None (occurrence: None)
  Receive Date: 20070307
  Receipt Date: 20061019
  Transmission Date: 20070707
  Serious: No
  Sender: FDA-Public Use
  Company Number: US-GLAXOSMITHKLINE-A0624212A

PATIENT
  Sex: Female

DRUGS (7)
  1. REQUIP [Suspect]
     Indication: RESTLESS LEGS SYNDROME
     Dosage: .25MG PER DAY
     Route: 048
     Dates: start: 20061017
  2. MIRAPEX [Concomitant]
  3. AMITRIPTYLINE HCL [Concomitant]
  4. ZOLOFT [Concomitant]
  5. CHOLESTEROL REDUCING AGENT [Concomitant]
  6. THYROID TAB [Concomitant]
  7. BLOOD PRESSURE MEDICATION [Concomitant]

REACTIONS (2)
  - DRUG INEFFECTIVE [None]
  - INSOMNIA [None]
